FAERS Safety Report 5486869-0 (Version None)
Quarter: 2007Q3

REPORT INFORMATION
  Report Type: 
  Country: None (occurrence: None)
  Receive Date: 20070925
  Receipt Date: 20070817
  Transmission Date: 20080115
  Serious: No
  Sender: FDA-Public Use
  Company Number: 2007US002003

PATIENT
  Age: 73 Year
  Sex: Female

DRUGS (8)
  1. VESICARE [Suspect]
     Indication: INCONTINENCE
     Dosage: 10 MG, ORAL
     Route: 048
     Dates: start: 20070709, end: 20070811
  2. LOTREL [Concomitant]
  3. LASIX [Concomitant]
  4. XANAX [Concomitant]
  5. TERIZIDONE (TERIZIDONE) [Concomitant]
  6. PHENTERMINE [Concomitant]
  7. OXYCODONE HCL [Concomitant]
  8. STOOL SOFTENER (DOCUSATE SODIUM) [Concomitant]

REACTIONS (1)
  - CONSTIPATION [None]
